FAERS Safety Report 18276819 (Version 1)
Quarter: 2020Q3

REPORT INFORMATION
  Report Type: Spontaneous
  Country: US (occurrence: US)
  Receive Date: 20200916
  Receipt Date: 20200916
  Transmission Date: 20201103
  Serious: Yes (Other)
  Sender: FDA-Public Use
  Company Number: None

PATIENT
  Age: 25 Year
  Sex: Male

DRUGS (3)
  1. DIVALOPROEX 125 MG SPRINKLES [Concomitant]
  2. DIVALOPROEX 125 MG TABS [Concomitant]
  3. DIVALPROEX [Suspect]
     Active Substance: DIVALPROEX SODIUM

REACTIONS (1)
  - Seizure [None]

NARRATIVE: CASE EVENT DATE: 20110925
